FAERS Safety Report 5673300-5 (Version None)
Quarter: 2008Q1

REPORT INFORMATION
  Report Type: 
  Country: None (occurrence: None)
  Receive Date: 20080319
  Receipt Date: 20080307
  Transmission Date: 20080703
  Serious: Yes (Other)
  Sender: FDA-Public Use
  Company Number: US-ELI_LILLY_AND_COMPANY-US200803001860

PATIENT
  Sex: Female

DRUGS (2)
  1. FORTEO [Suspect]
     Indication: PREOPERATIVE CARE
     Dates: start: 20060701
  2. FORTEO [Suspect]
     Dates: start: 20080307

REACTIONS (10)
  - ARTHROPATHY [None]
  - FALL [None]
  - FRACTURE [None]
  - GAIT DISTURBANCE [None]
  - HUMERUS FRACTURE [None]
  - PAIN IN EXTREMITY [None]
  - RADIAL NERVE INJURY [None]
  - RHEUMATOID ARTHRITIS [None]
  - ROTATOR CUFF SYNDROME [None]
  - SCAPULA FRACTURE [None]
